FAERS Safety Report 25338794 (Version 2)
Quarter: 2025Q4

REPORT INFORMATION
  Report Type: Spontaneous
  Country: US (occurrence: US)
  Receive Date: 20250520
  Receipt Date: 20251211
  Transmission Date: 20260118
  Serious: Yes (Hospitalization, Other)
  Sender: ABBVIE
  Company Number: US-ABBVIE-6284275

PATIENT
  Age: 56 Year
  Sex: Male
  Weight: 93.439 kg

DRUGS (2)
  1. SKYRIZI [Suspect]
     Active Substance: RISANKIZUMAB-RZAA
     Indication: Crohn^s disease
     Dosage: FORM STRENGTH: 360 MILLIGRAM, DOSE FORM- SOLUTION FOR INJECTION IN PRE-FILLED INJECTOR
     Route: 058
     Dates: start: 202409
  2. SKYRIZI [Suspect]
     Active Substance: RISANKIZUMAB-RZAA
     Indication: Crohn^s disease
     Route: 042
     Dates: start: 2024, end: 2024

REACTIONS (5)
  - Myocardial infarction [Recovering/Resolving]
  - Device issue [Unknown]
  - Vascular stent occlusion [Recovered/Resolved]
  - Bladder disorder [Unknown]
  - Needle issue [Unknown]

NARRATIVE: CASE EVENT DATE: 20250513
